FAERS Safety Report 13844971 (Version 7)
Quarter: 2019Q2

REPORT INFORMATION
  Report Type: Spontaneous
  Country: JP (occurrence: JP)
  Receive Date: 20170808
  Receipt Date: 20190604
  Transmission Date: 20190711
  Serious: Yes (Hospitalization, Other)
  Sender: FDA-Public Use
  Company Number: PHJP2017JP024718

PATIENT
  Age: 34 Year
  Sex: Female
  Weight: 47 kg

DRUGS (7)
  1. FAMOTIDINE. [Concomitant]
     Active Substance: FAMOTIDINE
     Indication: PROPHYLAXIS
     Dosage: 20 MG, BID
     Route: 048
     Dates: start: 20170710
  2. BUFFERIN [Concomitant]
     Active Substance: ASPIRIN
     Indication: PROPHYLAXIS
     Dosage: 330 MG, PRN
     Route: 048
     Dates: start: 20170710
  3. VESICARE [Concomitant]
     Active Substance: SOLIFENACIN SUCCINATE
     Indication: MULTIPLE SCLEROSIS
     Dosage: 5 MG, QD
     Route: 048
     Dates: start: 20150928
  4. FERROMIA [Concomitant]
     Active Substance: SODIUM FERROUS CITRATE
     Indication: IRON DEFICIENCY ANAEMIA
     Dosage: 50 MG, QD
     Route: 048
     Dates: start: 20151019
  5. MAGMITT [Concomitant]
     Active Substance: MAGNESIUM OXIDE
     Indication: CONSTIPATION
     Dosage: 330 MG, TID
     Route: 048
     Dates: start: 20170106
  6. GILENYA [Suspect]
     Active Substance: FINGOLIMOD HYDROCHLORIDE
     Indication: RELAPSING-REMITTING MULTIPLE SCLEROSIS
     Dosage: 0.5 MG, QD
     Route: 048
     Dates: start: 20140415, end: 20170216
  7. FERROUS CITRATE NA [Concomitant]
     Active Substance: SODIUM FERROUS CITRATE
     Indication: PRODUCT USED FOR UNKNOWN INDICATION
     Dosage: 50 MG, QD
     Route: 065
     Dates: start: 20151019

REACTIONS (8)
  - Lymphocyte count decreased [Recovered/Resolved]
  - Paralysis [Unknown]
  - Lymphocyte count decreased [Recovered/Resolved]
  - Multiple sclerosis relapse [Recovered/Resolved]
  - Gait disturbance [Unknown]
  - Sensory disturbance [Unknown]
  - Dysstasia [Unknown]
  - Central nervous system lesion [Recovered/Resolved]

NARRATIVE: CASE EVENT DATE: 20140421
